FAERS Safety Report 16211039 (Version 2)
Quarter: 2019Q2

REPORT INFORMATION
  Report Type: Spontaneous
  Country: US (occurrence: US)
  Receive Date: 20190418
  Receipt Date: 20190430
  Transmission Date: 20190711
  Serious: Yes (Death, Hospitalization, Other)
  Sender: FDA-Public Use
  Company Number: US-HORIZON-PRO-0075-2019

PATIENT
  Age: 30 Year
  Sex: Female
  Weight: 56 kg

DRUGS (2)
  1. MIDODRINE [Concomitant]
     Active Substance: MIDODRINE
  2. PROCYSBI [Suspect]
     Active Substance: CYSTEAMINE BITARTRATE
     Indication: CYSTINOSIS
     Dosage: 1000 MG (13 X 75 MG CAPSULES, 1 X 25 MG CAPSULES) TWICE DAILY
     Route: 048

REACTIONS (2)
  - Influenza [Fatal]
  - Mechanical ventilation [Not Recovered/Not Resolved]

NARRATIVE: CASE EVENT DATE: 20190330
